FAERS Safety Report 21234060 (Version 1)
Quarter: 2022Q3

REPORT INFORMATION
  Report Type: Spontaneous
  Country: CA (occurrence: CA)
  Receive Date: 20220819
  Receipt Date: 20220819
  Transmission Date: 20221027
  Serious: Yes (Life-Threatening, Hospitalization)
  Sender: FDA-Public Use
  Company Number: CA-PFIZER INC-202201070091

PATIENT
  Age: 17 Year
  Sex: Male
  Weight: 104 kg

DRUGS (3)
  1. METHOTREXATE SODIUM [Suspect]
     Active Substance: METHOTREXATE SODIUM
  2. VINCRISTINE SULFATE [Suspect]
     Active Substance: VINCRISTINE SULFATE
  3. PEGASPARGASE [Suspect]
     Active Substance: PEGASPARGASE

REACTIONS (1)
  - Febrile neutropenia [Recovering/Resolving]
